FAERS Safety Report 4867308-7 (Version None)
Quarter: 2005Q4

REPORT INFORMATION
  Report Type: 
  Country: None (occurrence: None)
  Receive Date: 20051228
  Receipt Date: 20000114
  Transmission Date: 20060501
  Serious: Yes (Hospitalization)
  Sender: FDA-Public Use
  Company Number: US-ROCHE-225884

PATIENT
  Age: 70 Year
  Sex: Male
  Weight: 75 kg

DRUGS (14)
  1. BACTRIM [Suspect]
     Indication: DRUG USE FOR UNKNOWN INDICATION
     Route: 048
     Dates: start: 19991215
  2. PLACEBO [Suspect]
     Dosage: 5 DOSES OVER 2 MONTHS.
     Route: 042
     Dates: start: 19991220, end: 20000207
  3. MYCOPHENOLATE MOFETIL [Suspect]
     Route: 048
     Dates: start: 19991220
  4. NEORAL [Suspect]
     Route: 065
     Dates: start: 19991221
  5. PREDNISONE 50MG TAB [Suspect]
     Route: 065
     Dates: start: 19991220
  6. SIMVASTATIN [Suspect]
     Indication: DRUG USE FOR UNKNOWN INDICATION
     Route: 065
     Dates: start: 20000224
  7. REGULAR INSULIN [Suspect]
     Indication: DRUG USE FOR UNKNOWN INDICATION
     Route: 065
     Dates: start: 20000108
  8. NYSTATIN [Concomitant]
     Dates: start: 19991215
  9. GANCICLOVIR [Concomitant]
     Dates: start: 19991215
  10. AMLODIPINE [Concomitant]
  11. PEPCID [Concomitant]
  12. EFFEXOR [Concomitant]
  13. GLIPIZIDE [Concomitant]
  14. NPH INSULIN [Concomitant]

REACTIONS (7)
  - ACTINIC KERATOSIS [None]
  - ALANINE AMINOTRANSFERASE INCREASED [None]
  - ASTHENIA [None]
  - HEART TRANSPLANT REJECTION [None]
  - SCAB [None]
  - SQUAMOUS CELL CARCINOMA [None]
  - WEIGHT DECREASED [None]
